FAERS Safety Report 4432126-0 (Version None)
Quarter: 2004Q3

REPORT INFORMATION
  Report Type: 
  Country: None (occurrence: None)
  Receive Date: 20040819
  Receipt Date: 20040812
  Transmission Date: 20050211
  Serious: Yes (Life-Threatening, Hospitalization, Other)
  Sender: FDA-Public Use
  Company Number: HQWYE071306AUG04

PATIENT
  Age: 38 Year
  Sex: Male
  Weight: 90.8 kg

DRUGS (2)
  1. EFFEXOR XR [Suspect]
     Indication: ANXIETY
     Dosage: SEE IMAGE ORAL
     Route: 048
     Dates: start: 20040701, end: 20040729
  2. EFFEXOR XR [Suspect]
     Indication: ANXIETY
     Dosage: SEE IMAGE ORAL
     Route: 048
     Dates: start: 20040730, end: 20040805

REACTIONS (13)
  - ABNORMAL DREAMS [None]
  - ANORGASMIA [None]
  - ANXIETY [None]
  - CONDITION AGGRAVATED [None]
  - DYSPNOEA [None]
  - FALL [None]
  - HYPERHIDROSIS [None]
  - HYPERSENSITIVITY [None]
  - INSOMNIA [None]
  - OROPHARYNGEAL SWELLING [None]
  - PRURITUS [None]
  - STOMACH DISCOMFORT [None]
  - VOMITING [None]
